FAERS Safety Report 10185231 (Version 1)
Quarter: 2014Q2

REPORT INFORMATION
  Report Type: Spontaneous
  Country: US (occurrence: None)
  Receive Date: 20140520
  Receipt Date: 20140520
  Transmission Date: 20141212
  Serious: Yes (Disabling)
  Sender: FDA-Public Use
  Company Number: None

PATIENT
  Age: 61 Year
  Sex: Female
  Weight: 52.16 kg

DRUGS (1)
  1. AVELOX [Suspect]
     Indication: PNEUMONIA
     Route: 048
     Dates: start: 20140326, end: 20140328

REACTIONS (7)
  - Hypoaesthesia [None]
  - Hypoaesthesia [None]
  - Gait disturbance [None]
  - Insomnia [None]
  - Fatigue [None]
  - Neuropathy peripheral [None]
  - Quality of life decreased [None]
